FAERS Safety Report 19678509 (Version 3)
Quarter: 2022Q2

REPORT INFORMATION
  Report Type: Spontaneous
  Country: US (occurrence: US)
  Receive Date: 20210809
  Receipt Date: 20220404
  Transmission Date: 20220721
  Serious: No
  Sender: FDA-Public Use
  Company Number: US-PFIZER INC-2021318825

PATIENT
  Age: 84 Year
  Sex: Male
  Weight: 90.703 kg

DRUGS (2)
  1. IBRANCE [Suspect]
     Active Substance: PALBOCICLIB
     Indication: Liposarcoma
     Dosage: 125 MG
  2. IBRANCE [Suspect]
     Active Substance: PALBOCICLIB
     Dosage: 75 MG, 1X/DAY, FOR 14 DOSES FOLLOWED BY 7 DAYS OFF
     Route: 048
     Dates: start: 20210423

REACTIONS (5)
  - Off label use [Unknown]
  - Off label use [Unknown]
  - Rash [Not Recovered/Not Resolved]
  - White blood cell count decreased [Not Recovered/Not Resolved]
  - Platelet count decreased [Not Recovered/Not Resolved]

NARRATIVE: CASE EVENT DATE: 20210401
